FAERS Safety Report 13573535 (Version 1)
Quarter: 2017Q2

REPORT INFORMATION
  Report Type: Other
  Country: GB (occurrence: GB)
  Receive Date: 20170523
  Receipt Date: 20170523
  Transmission Date: 20170830
  Serious: Yes (Hospitalization, Other)
  Sender: FDA-Public Use
  Company Number: GB-TAKEDA-2017TEU002105

PATIENT
  Age: 87 Year
  Sex: Female

DRUGS (9)
  1. SALBUTAMOL [Concomitant]
     Active Substance: ALBUTEROL
     Dosage: UNK
  2. APIXABAN [Concomitant]
     Active Substance: APIXABAN
     Dosage: 5 MG, BID
     Route: 048
  3. BUMETANIDE. [Concomitant]
     Active Substance: BUMETANIDE
     Dosage: 1 MG, QD
     Route: 048
  4. CARBOCISTEINE [Concomitant]
     Active Substance: CARBOCYSTEINE
     Dosage: 750 MG, BID
  5. TIOTROPIUM [Concomitant]
     Active Substance: TIOTROPIUM
     Dosage: 10 ?G, QD
  6. PIOGLITAZONE. [Suspect]
     Active Substance: PIOGLITAZONE
     Indication: PRODUCT USED FOR UNKNOWN INDICATION
     Dosage: 15 MG, QD
     Route: 048
  7. AVEENO [Concomitant]
     Active Substance: DIMETHICONE\HOMOSALATE\OCTINOXATE\OCTISALATE\TITANIUM DIOXIDE
     Dosage: UNK
  8. DOCUSATE [Concomitant]
     Active Substance: DOCUSATE
     Dosage: 200 MG, BID
     Route: 048
  9. OMEPRAZOLE. [Concomitant]
     Active Substance: OMEPRAZOLE
     Dosage: 40 MG, QD
     Route: 048

REACTIONS (8)
  - Cardiac failure [Not Recovered/Not Resolved]
  - Tachypnoea [Not Recovered/Not Resolved]
  - Hypotension [Not Recovered/Not Resolved]
  - Wheezing [Not Recovered/Not Resolved]
  - Dyspnoea [Not Recovered/Not Resolved]
  - Pneumonia [Unknown]
  - Acute kidney injury [Unknown]
  - Tachycardia [Not Recovered/Not Resolved]

NARRATIVE: CASE EVENT DATE: 20170503
